FAERS Safety Report 7125267-0 (Version None)
Quarter: 2010Q4

REPORT INFORMATION
  Report Type: 
  Country: None (occurrence: None)
  Receive Date: 20101112
  Receipt Date: 20101102
  Transmission Date: 20110411
  Serious: Yes (Hospitalization)
  Sender: FDA-Public Use
  Company Number: 10-459

PATIENT
  Age: 7 Year
  Sex: Male

DRUGS (2)
  1. IBUPROFEN [Suspect]
     Indication: JUVENILE ARTHRITIS
     Dosage: 10MG/KG/8 HOURS
     Dates: start: 20080101
  2. DICLOFENAC SODIUM [Suspect]
     Indication: POSTOPERATIVE CARE
     Dosage: RECTAL
     Route: 054
     Dates: start: 20080101

REACTIONS (3)
  - DEHYDRATION [None]
  - RENAL FAILURE ACUTE [None]
  - VOMITING [None]
